FAERS Safety Report 5563489-0 (Version None)
Quarter: 2007Q4

REPORT INFORMATION
  Report Type: 
  Country: None (occurrence: None)
  Receive Date: 20071217
  Receipt Date: 20070717
  Transmission Date: 20080405
  Serious: Yes (Hospitalization)
  Sender: FDA-Public Use
  Company Number: US-ASTRAZENECA-2007UW14439

PATIENT
  Age: 28263 Day
  Sex: Male

DRUGS (11)
  1. CRESTOR [Suspect]
     Indication: CORONARY ARTERY DISEASE
     Route: 048
     Dates: start: 20061201
  2. CRESTOR [Suspect]
     Indication: HYPERLIPIDAEMIA
     Route: 048
     Dates: start: 20061201
  3. CRESTOR [Suspect]
     Route: 048
     Dates: start: 20070201, end: 20070614
  4. CRESTOR [Suspect]
     Route: 048
     Dates: start: 20070201, end: 20070614
  5. GLIPIZIDE [Concomitant]
  6. AVANDIA [Concomitant]
  7. LISINOPRIL [Concomitant]
  8. TYLENOL [Concomitant]
  9. SALICYLIC ACID [Concomitant]
  10. LODINE [Concomitant]
     Indication: GOUT
  11. LYRICA [Concomitant]
     Indication: DIABETIC NEUROPATHY

REACTIONS (8)
  - BLOOD URINE PRESENT [None]
  - DYSPNOEA [None]
  - GOUT [None]
  - IRON DEFICIENCY ANAEMIA [None]
  - METABOLIC DISORDER [None]
  - MYOPATHY [None]
  - RENAL FAILURE ACUTE [None]
  - RHABDOMYOLYSIS [None]
